FAERS Safety Report 5805443-7 (Version None)
Quarter: 2008Q3

REPORT INFORMATION
  Report Type: 
  Country: None (occurrence: None)
  Receive Date: 20080708
  Receipt Date: 20080625
  Transmission Date: 20090109
  Serious: Yes (Hospitalization)
  Sender: FDA-Public Use
  Company Number: OPIR20080017

PATIENT
  Age: 55 Year
  Sex: Female

DRUGS (2)
  1. OPANA [Suspect]
     Indication: BREAKTHROUGH PAIN
     Dosage: 1 TAB Q6H PRN, PER ORAL
     Route: 048
     Dates: start: 20080620, end: 20080620
  2. OXYCONTIN [Concomitant]

REACTIONS (4)
  - HEADACHE [None]
  - HYPERSENSITIVITY [None]
  - PALPITATIONS [None]
  - VISION BLURRED [None]
